FAERS Safety Report 10498771 (Version 2)
Quarter: 2014Q4

REPORT INFORMATION
  Report Type: Spontaneous
  Country: PL (occurrence: PL)
  Receive Date: 20141006
  Receipt Date: 20141016
  Transmission Date: 20150528
  Serious: Yes (Other)
  Sender: FDA-Public Use
  Company Number: PL-ROCHE-1469113

PATIENT
  Age: 33 Year
  Sex: Male

DRUGS (2)
  1. ACTILYSE [Suspect]
     Active Substance: ALTEPLASE
     Indication: CEREBROVASCULAR ACCIDENT
     Dosage: (10% OF A TOTAL DOSE AS A BOLUS, AND THE REMAINING DOSE OVER 60 MIN).
     Route: 042
  2. ACTILYSE [Suspect]
     Active Substance: ALTEPLASE
     Dosage: BOLUS
     Route: 013

REACTIONS (4)
  - Vertebral artery dissection [Recovered/Resolved]
  - Hemianopia homonymous [Not Recovered/Not Resolved]
  - Haemorrhage [Recovered/Resolved]
  - Haematoma [Recovered/Resolved]
